FAERS Safety Report 9758465 (Version 1)
Quarter: 2013Q4

REPORT INFORMATION
  Report Type: Spontaneous
  Country: US (occurrence: None)
  Receive Date: 20131216
  Receipt Date: 20131216
  Transmission Date: 20140711
  Serious: No
  Sender: FDA-Public Use
  Company Number: CABO-13002501

PATIENT
  Age: 22 Year
  Sex: Male

DRUGS (1)
  1. COMETRIQ [Suspect]
     Indication: RENAL CANCER
     Dosage: 60 MG, QD, ORAL?80 MG. EVERY NIGHT 5/DAYS WEEK, ORAL

REACTIONS (4)
  - Acne [None]
  - Hair colour changes [None]
  - Feeling hot [None]
  - Fatigue [None]
